FAERS Safety Report 4395715-8 (Version None)
Quarter: 2004Q3

REPORT INFORMATION
  Report Type: 
  Country: None (occurrence: None)
  Receive Date: 20040708
  Receipt Date: 20040629
  Transmission Date: 20050211
  Serious: Yes (Other)
  Sender: FDA-Public Use
  Company Number: US-JNJFOC-20040602757

PATIENT
  Sex: Male

DRUGS (1)
  1. ACETAMINOPHEN [Suspect]
     Indication: BACK PAIN
     Dosage: 500 MG, 8 IN 1 DAY, ORAL
     Route: 048
     Dates: start: 20021201

REACTIONS (1)
  - HEART RATE DECREASED [None]
